FAERS Safety Report 4923045-1 (Version None)
Quarter: 2006Q1

REPORT INFORMATION
  Report Type: 
  Country: None (occurrence: None)
  Receive Date: 20060125
  Receipt Date: 20050922
  Transmission Date: 20060701
  Serious: Yes (Hospitalization)
  Sender: FDA-Public Use
  Company Number: HQWYE615423SEP05

PATIENT
  Age: 79 Year
  Sex: Female

DRUGS (5)
  1. CORDARONE [Suspect]
     Indication: ATRIAL FIBRILLATION
     Dosage: 200 MG 1X PER 1 DAY, ORAL
     Route: 048
     Dates: start: 20010101
  2. ASPIRIN [Concomitant]
  3. ZESTRIL [Concomitant]
  4. LASIX [Concomitant]
  5. IMDUR [Concomitant]

REACTIONS (2)
  - DYSPNOEA [None]
  - PLEURAL EFFUSION [None]
